FAERS Safety Report 21674852 (Version 3)
Quarter: 2023Q1

REPORT INFORMATION
  Report Type: Spontaneous
  Country: US (occurrence: US)
  Receive Date: 20221202
  Receipt Date: 20230221
  Transmission Date: 20230417
  Serious: No
  Sender: FDA-Public Use
  Company Number: US-SA-SAC20221129001430

PATIENT
  Age: 45 Year
  Sex: Female

DRUGS (3)
  1. DUPIXENT [Suspect]
     Active Substance: DUPILUMAB
     Indication: Asthma
     Dosage: 300 MG, QM
     Route: 058
     Dates: start: 202209, end: 202209
  2. DUPIXENT [Suspect]
     Active Substance: DUPILUMAB
     Dosage: 300 MG, QOW
     Route: 058
  3. DUPIXENT [Suspect]
     Active Substance: DUPILUMAB
     Dosage: 300 MG, OTHER
     Route: 058
     Dates: start: 202211

REACTIONS (4)
  - Sinusitis [Unknown]
  - Condition aggravated [Unknown]
  - Asthma [Unknown]
  - Inappropriate schedule of product administration [Unknown]

NARRATIVE: CASE EVENT DATE: 20220901
